FAERS Safety Report 7372457-8 (Version None)
Quarter: 2011Q1

REPORT INFORMATION
  Report Type: 
  Country: None (occurrence: None)
  Receive Date: 20110324
  Receipt Date: 20110315
  Transmission Date: 20110831
  Serious: Yes (Other)
  Sender: FDA-Public Use
  Company Number: PT-JNJFOC-20110307837

PATIENT
  Age: 32 Year
  Sex: Male

DRUGS (1)
  1. HALOPERIDOL DECANOATE [Suspect]
     Indication: AGGRESSION
     Route: 030

REACTIONS (2)
  - NEUROLEPTIC MALIGNANT SYNDROME [None]
  - MUTISM [None]
